FAERS Safety Report 11705328 (Version 3)
Quarter: 2016Q1

REPORT INFORMATION
  Report Type: Spontaneous
  Country: US (occurrence: US)
  Receive Date: 20151106
  Receipt Date: 20160310
  Transmission Date: 20160525
  Serious: Yes (Death, Hospitalization)
  Sender: FDA-Public Use
  Company Number: US-SA-2015SA176782

PATIENT
  Age: 65 Year
  Sex: Male
  Weight: 83 kg

DRUGS (5)
  1. PLAVIX [Interacting]
     Active Substance: CLOPIDOGREL BISULFATE
     Indication: CORONARY ARTERY DISEASE
     Route: 048
     Dates: start: 2004, end: 2015
  2. ANORO ELLIPTA [Concomitant]
     Active Substance: UMECLIDINIUM BROMIDE\VILANTEROL TRIFENATATE
     Route: 048
  3. OXYGEN. [Concomitant]
     Active Substance: OXYGEN
     Dates: start: 2014
  4. PLAVIX [Suspect]
     Active Substance: CLOPIDOGREL BISULFATE
     Indication: STENT PLACEMENT
     Route: 048
     Dates: start: 2004, end: 2015
  5. VFEND [Interacting]
     Active Substance: VORICONAZOLE
     Indication: ASPERGILLUS INFECTION
     Route: 065
     Dates: start: 20150728, end: 201508

REACTIONS (7)
  - Hallucination [Recovered/Resolved]
  - Vision blurred [Unknown]
  - Peripheral swelling [Unknown]
  - Nausea [Unknown]
  - Diarrhoea [Unknown]
  - Drug interaction [Recovered/Resolved]
  - Hospitalisation [Fatal]

NARRATIVE: CASE EVENT DATE: 2015
